FAERS Safety Report 8616397-2 (Version None)
Quarter: 2012Q3

REPORT INFORMATION
  Report Type: 
  Country: None (occurrence: None)
  Receive Date: 20120823
  Receipt Date: 20120816
  Transmission Date: 20120928
  Serious: Yes (Hospitalization, Other)
  Sender: FDA-Public Use
  Company Number: US-009507513-1202USA00215

PATIENT

DRUGS (11)
  1. ALENDRONATE SODIUM [Suspect]
     Dosage: 70 MG, QW
     Dates: start: 20091201, end: 20100801
  2. FOSAMAX [Suspect]
     Indication: OSTEOPOROSIS
     Dosage: 70 MG, QW
     Route: 048
     Dates: start: 20010220, end: 20081001
  3. VITAMIN D [Concomitant]
  4. HYDROCHLOROTHIAZIDE [Concomitant]
     Indication: HYPERTENSION
  5. ALENDRONATE SODIUM [Suspect]
  6. FOSAMAX [Suspect]
     Indication: OSTEOPENIA
  7. ALENDRONATE SODIUM [Suspect]
     Indication: OSTEOPENIA
  8. ALENDRONATE SODIUM [Suspect]
     Dosage: 70 MG, QW
     Dates: start: 20100802, end: 20110401
  9. ALENDRONATE SODIUM [Suspect]
     Dosage: 70 MG, QW
     Dates: start: 20090630, end: 20091201
  10. CENTRUM (MINERALS (UNSPECIFIED) (+) VITAMINS (UNSPECIFIED)) [Concomitant]
     Dosage: UNK
  11. ALENDRONATE SODIUM [Suspect]
     Indication: OSTEOPOROSIS
     Dosage: 70 MG, QW
     Dates: start: 20081019, end: 20090601

REACTIONS (14)
  - GASTROOESOPHAGEAL REFLUX DISEASE [None]
  - ASTHMA [None]
  - FEMUR FRACTURE [None]
  - HAND FRACTURE [None]
  - ORAL CANDIDIASIS [None]
  - VITAMIN D DEFICIENCY [None]
  - OBESITY [None]
  - OSTEOARTHRITIS [None]
  - FALL [None]
  - PUBIS FRACTURE [None]
  - ROAD TRAFFIC ACCIDENT [None]
  - BACK PAIN [None]
  - VULVOVAGINITIS [None]
  - FRACTURE NONUNION [None]
